FAERS Safety Report 6721366-3 (Version None)
Quarter: 2010Q2

REPORT INFORMATION
  Report Type: 
  Country: None (occurrence: None)
  Receive Date: 20100512
  Receipt Date: 20100506
  Transmission Date: 20101027
  Serious: Yes (Hospitalization, Other)
  Sender: FDA-Public Use
  Company Number: PHHO2010US02096

PATIENT
  Sex: Female

DRUGS (22)
  1. AFINITOR [Suspect]
     Indication: NEUROENDOCRINE CARCINOMA
     Dosage: 10 MG, QD
     Route: 048
     Dates: start: 20100114, end: 20100123
  2. AFINITOR [Suspect]
     Dosage: NO TREATMENT
     Dates: start: 20100124, end: 20100203
  3. AFINITOR [Suspect]
     Dosage: 10MG/DAY
     Route: 048
     Dates: start: 20100204
  4. SORAFENIB COMP-SORA+TAB [Suspect]
     Indication: NEUROENDOCRINE CARCINOMA
     Dosage: 200 MG, BID
     Route: 048
     Dates: start: 20100114, end: 20100123
  5. CYANOCOBALAMIN [Concomitant]
  6. CALCIUM CARBONATE [Concomitant]
  7. OPIUM TINCTURE [Concomitant]
  8. GABAPENTIN [Concomitant]
  9. LOPERAMIDE [Concomitant]
  10. FUROSEMIDE [Concomitant]
  11. DIPHENOXYLATE HCL AND ATROPINE SULFATE [Concomitant]
  12. LORAZEPAM [Concomitant]
  13. ENOXAPARIN SODIUM [Concomitant]
  14. MULTI-VITAMINS [Concomitant]
  15. OXYCODONE [Concomitant]
  16. PANCRELIPASE [Concomitant]
  17. PROMETHAZINE [Concomitant]
  18. POTASSIUM CHLORIDE [Concomitant]
  19. BUPROPION HCL [Concomitant]
  20. ONDANSETRON HYDROCHLORIDE [Concomitant]
  21. FENTANYL [Concomitant]
  22. OMEPRAZOLE [Concomitant]

REACTIONS (11)
  - ABDOMINAL PAIN [None]
  - FAECES DISCOLOURED [None]
  - FAILURE TO THRIVE [None]
  - GASTROINTESTINAL HAEMORRHAGE [None]
  - HYPOPHAGIA [None]
  - HYPOPHOSPHATAEMIA [None]
  - HYPOVOLAEMIA [None]
  - INTESTINAL OBSTRUCTION [None]
  - NAUSEA [None]
  - PAIN [None]
  - VOMITING [None]
